FAERS Safety Report 6185622-2 (Version None)
Quarter: 2009Q2

REPORT INFORMATION
  Report Type: 
  Country: None (occurrence: None)
  Receive Date: 20090507
  Receipt Date: 20090429
  Transmission Date: 20091009
  Serious: Yes (Other)
  Sender: FDA-Public Use
  Company Number: 2009SP009195

PATIENT
  Age: 11 Year
  Sex: Female

DRUGS (3)
  1. CLARITIN [Suspect]
     Indication: MULTIPLE ALLERGIES
     Dosage: 10 MG;
  2. SALBUTAMOL (SALBUTAMOL) [Suspect]
     Indication: ASTHMA
     Dosage: 200 MCG;
  3. CROMOGLICATE [Concomitant]

REACTIONS (1)
  - EPILEPSY [None]
